FAERS Safety Report 6098755-6 (Version None)
Quarter: 2009Q1

REPORT INFORMATION
  Report Type: 
  Country: None (occurrence: None)
  Receive Date: 20090302
  Receipt Date: 20090218
  Transmission Date: 20090719
  Serious: Yes (Other)
  Sender: FDA-Public Use
  Company Number: JP-PFIZER INC-2009173126

PATIENT

DRUGS (2)
  1. NORVASC [Suspect]
     Dosage: UNK
     Route: 048
  2. VALSARTAN [Concomitant]
     Dosage: UNK
     Route: 048

REACTIONS (1)
  - INTRADUCTAL PAPILLOMA OF BREAST [None]
